FAERS Safety Report 21283074 (Version 1)
Quarter: 2022Q3

REPORT INFORMATION
  Report Type: Spontaneous
  Country: TR (occurrence: TR)
  Receive Date: 20220901
  Receipt Date: 20220901
  Transmission Date: 20221027
  Serious: Yes (Other)
  Sender: FDA-Public Use
  Company Number: TR-AMERICAN REGENT INC-2022002513

PATIENT
  Sex: Female

DRUGS (1)
  1. FERINJECT [Suspect]
     Active Substance: FERRIC CARBOXYMALTOSE
     Indication: Product used for unknown indication
     Dosage: 1000 MILLIGRAM (2 VIALS 150 CC ISOTONIC)

REACTIONS (2)
  - Confusional state [Recovered/Resolved]
  - Dyspnoea [Recovered/Resolved]
